FAERS Safety Report 6714331-3 (Version None)
Quarter: 2010Q2

REPORT INFORMATION
  Report Type: 
  Country: None (occurrence: None)
  Receive Date: 20100503
  Receipt Date: 20100421
  Transmission Date: 20101027
  Serious: Yes (Hospitalization)
  Sender: FDA-Public Use
  Company Number: 1000013495

PATIENT
  Age: 82 Year
  Sex: Female

DRUGS (9)
  1. ESCITALOPRAM [Suspect]
  2. IXPRIM [Suspect]
  3. CORVASAL [Suspect]
     Dosage: ORAL
     Route: 048
  4. TAREG (TABLETS) [Suspect]
     Dosage: (80 MG), ORAL
     Route: 048
  5. LASIX [Suspect]
     Dosage: ORAL
     Route: 048
  6. TAHOR [Concomitant]
  7. DIFFU K [Concomitant]
  8. LEVOTHYROX [Concomitant]
  9. MOPRAL [Concomitant]

REACTIONS (4)
  - DRUG INTERACTION [None]
  - LOSS OF CONSCIOUSNESS [None]
  - MALAISE [None]
  - ORTHOSTATIC HYPOTENSION [None]
